FAERS Safety Report 5440923-8 (Version None)
Quarter: 2007Q3

REPORT INFORMATION
  Report Type: 
  Country: None (occurrence: None)
  Receive Date: 20070831
  Receipt Date: 20070823
  Transmission Date: 20080115
  Serious: Yes (Hospitalization)
  Sender: FDA-Public Use
  Company Number: FR-PFIZER INC-2007037080

PATIENT
  Sex: Female
  Weight: 56 kg

DRUGS (9)
  1. SU-011,248 [Suspect]
     Indication: BREAST CANCER
     Route: 048
     Dates: start: 20070202, end: 20070329
  2. ESOMEPRAZOLE MAGNESIUM [Concomitant]
     Route: 048
  3. MORPHINE [Concomitant]
     Route: 048
  4. FUROSEMIDE [Concomitant]
     Route: 048
  5. IBANDRONIC ACID [Concomitant]
  6. AVIBON [Concomitant]
  7. METOCLOPRAMIDE [Concomitant]
  8. ONDANSETRON [Concomitant]
  9. PREDNISOLONE [Concomitant]

REACTIONS (2)
  - ASCITES [None]
  - PLEURAL EFFUSION [None]
